FAERS Safety Report 17602653 (Version 1)
Quarter: 2020Q1

REPORT INFORMATION
  Report Type: Spontaneous
  Country: GB (occurrence: GB)
  Receive Date: 20200331
  Receipt Date: 20200331
  Transmission Date: 20200409
  Serious: Yes (Hospitalization, Other)
  Sender: FDA-Public Use
  Company Number: GB-TEVA-2010A-01464

PATIENT
  Age: 17 Year
  Sex: Male

DRUGS (29)
  1. AMISULPRIDE (UNKNOWN) [Suspect]
     Active Substance: AMISULPRIDE
     Indication: PRODUCT USED FOR UNKNOWN INDICATION
     Dosage: 300 MG
     Route: 065
  2. PARACETAMOL [Concomitant]
     Active Substance: ACETAMINOPHEN
     Indication: PRODUCT USED FOR UNKNOWN INDICATION
     Dates: start: 198905
  3. ZUCLOPENTHIXOL [Concomitant]
     Active Substance: ZUCLOPENTHIXOL
     Indication: PRODUCT USED FOR UNKNOWN INDICATION
     Dosage: 400 MILLIGRAM DAILY; 400MG ONCE PER WEEK
     Route: 030
  4. DEPIXOL [Concomitant]
     Indication: PRODUCT USED FOR UNKNOWN INDICATION
     Dosage: 40 MILLIGRAM DAILY; 40MG ONCE WEEKLY
     Route: 030
  5. OLANZAPINE. [Concomitant]
     Active Substance: OLANZAPINE
     Indication: PRODUCT USED FOR UNKNOWN INDICATION
     Dosage: 20 MG
  6. RISPERIDONE. [Concomitant]
     Active Substance: RISPERIDONE
     Indication: PRODUCT USED FOR UNKNOWN INDICATION
  7. TRIFLUOPERAZINE [Concomitant]
     Active Substance: TRIFLUOPERAZINE HYDROCHLORIDE
     Dosage: 15 MG
  8. AMISULPRIDE (UNKNOWN) [Suspect]
     Active Substance: AMISULPRIDE
     Dosage: 400 MG
     Route: 065
  9. ARIPIPRAZOLE. [Concomitant]
     Active Substance: ARIPIPRAZOLE
     Indication: PRODUCT USED FOR UNKNOWN INDICATION
     Dosage: 10 MILLIGRAM DAILY; 10MG ONCE DAILY
  10. CLOPIXOL DEPOT [Concomitant]
     Active Substance: ZUCLOPENTHIXOL
     Indication: PRODUCT USED FOR UNKNOWN INDICATION
  11. PROCYCLIDINE [Concomitant]
     Active Substance: PROCYCLIDINE
     Dosage: 10 MG
  12. STELAZINE [Concomitant]
     Active Substance: TRIFLUOPERAZINE HYDROCHLORIDE
     Indication: PRODUCT USED FOR UNKNOWN INDICATION
  13. ARIPIPRAZOLE. [Concomitant]
     Active Substance: ARIPIPRAZOLE
     Dosage: 15 MG
  14. DIAZEPAM. [Concomitant]
     Active Substance: DIAZEPAM
     Indication: PRODUCT USED FOR UNKNOWN INDICATION
     Dosage: 80 MG DAILY
  15. AMISULPRIDE (UNKNOWN) [Suspect]
     Active Substance: AMISULPRIDE
     Dosage: 350 MG
     Route: 065
  16. CARBAMAZEPINE. [Suspect]
     Active Substance: CARBAMAZEPINE
     Indication: PRODUCT USED FOR UNKNOWN INDICATION
     Route: 065
  17. CLOZARIL [Suspect]
     Active Substance: CLOZAPINE
     Route: 065
  18. DEPIXOL [Concomitant]
     Dosage: 50 MILLIGRAM DAILY; 10MG ONCE WEEKLY
     Route: 030
  19. PROCYCLIDINE [Concomitant]
     Active Substance: PROCYCLIDINE
     Indication: PRODUCT USED FOR UNKNOWN INDICATION
     Dosage: 5 MG
  20. OMEPRAZOLE. [Concomitant]
     Active Substance: OMEPRAZOLE
     Indication: PRODUCT USED FOR UNKNOWN INDICATION
     Dosage: 20 MG
  21. ZUCLOPENTHIXOL [Concomitant]
     Active Substance: ZUCLOPENTHIXOL
     Dosage: 600 MILLIGRAM DAILY; 600MG ONCE A WEEK
     Route: 030
  22. TRIFLUOPERAZINE [Concomitant]
     Active Substance: TRIFLUOPERAZINE HYDROCHLORIDE
     Indication: PRODUCT USED FOR UNKNOWN INDICATION
     Dosage: 6 MG
  23. TRIFLUOPERAZINE [Concomitant]
     Active Substance: TRIFLUOPERAZINE HYDROCHLORIDE
     Dosage: 10 MG
  24. AMISULPRIDE (UNKNOWN) [Suspect]
     Active Substance: AMISULPRIDE
     Dosage: 250 MG
     Route: 065
  25. ARIPIPRAZOLE. [Concomitant]
     Active Substance: ARIPIPRAZOLE
     Dosage: 30 MG
  26. HALOPERIDOL. [Concomitant]
     Active Substance: HALOPERIDOL
     Indication: PRODUCT USED FOR UNKNOWN INDICATION
     Dosage: 50 MILLIGRAM DAILY; 50MG THREE TIMES A DAY
  27. PIPOTIAZINE [Concomitant]
     Active Substance: PIPOTIAZINE
     Indication: PRODUCT USED FOR UNKNOWN INDICATION
  28. CLOZARIL [Suspect]
     Active Substance: CLOZAPINE
     Indication: SCHIZOPHRENIA
     Route: 065
     Dates: start: 19920116
  29. QUETIAPINE. [Concomitant]
     Active Substance: QUETIAPINE
     Indication: PRODUCT USED FOR UNKNOWN INDICATION
     Dosage: 600 MG

REACTIONS (38)
  - Abnormal behaviour [Unknown]
  - Psychotic disorder [Unknown]
  - Sedation [Recovering/Resolving]
  - Thought blocking [Unknown]
  - Treatment noncompliance [Unknown]
  - Suicidal ideation [Unknown]
  - Aggression [Unknown]
  - Hyperlipidaemia [Unknown]
  - Overweight [Unknown]
  - Hallucination [Unknown]
  - Mental impairment [Unknown]
  - Obsessive thoughts [Unknown]
  - Psychiatric symptom [Unknown]
  - Staring [Unknown]
  - Depression [Unknown]
  - Delusion [Unknown]
  - Salivary gland calculus [Unknown]
  - Salivary hypersecretion [Unknown]
  - Stress [Unknown]
  - Antisocial behaviour [Unknown]
  - Anxiety [Unknown]
  - Hallucination, auditory [Unknown]
  - Cholinergic syndrome [Unknown]
  - Skin laceration [Unknown]
  - Overdose [Unknown]
  - Neutropenia [Unknown]
  - Rash [Unknown]
  - Pyrexia [Unknown]
  - Echolalia [Unknown]
  - Restlessness [Unknown]
  - Theft [Unknown]
  - Cognitive disorder [Unknown]
  - Sensory disturbance [Unknown]
  - Inappropriate affect [Unknown]
  - Poverty of speech [Unknown]
  - Pyrexia [Unknown]
  - Schizophrenia [Unknown]
  - Tic [Unknown]

NARRATIVE: CASE EVENT DATE: 1987
